FAERS Safety Report 6072434-3 (Version None)
Quarter: 2009Q1

REPORT INFORMATION
  Report Type: 
  Country: None (occurrence: None)
  Receive Date: 20090210
  Receipt Date: 20090204
  Transmission Date: 20090719
  Serious: Yes (Hospitalization)
  Sender: FDA-Public Use
  Company Number: PL-ABBOTT-09P-129-0501667-00

PATIENT
  Age: 40 Year
  Sex: Male
  Weight: 74 kg

DRUGS (4)
  1. KALETRA [Suspect]
     Indication: HIV INFECTION
     Dosage: 2X2 TABL
     Route: 048
     Dates: start: 20080109
  2. TENOFOVIR [Suspect]
     Indication: DRUG USE FOR UNKNOWN INDICATION
  3. DOXEPIN HCL [Suspect]
     Indication: DRUG USE FOR UNKNOWN INDICATION
  4. FTC/TDF [Concomitant]
     Indication: DRUG USE FOR UNKNOWN INDICATION
     Dates: start: 20080109

REACTIONS (1)
  - RENAL FAILURE [None]
